FAERS Safety Report 25698206 (Version 1)
Quarter: 2025Q3

REPORT INFORMATION
  Report Type: Spontaneous
  Country: US (occurrence: US)
  Receive Date: 20250819
  Receipt Date: 20250819
  Transmission Date: 20251020
  Serious: Yes (Death, Other)
  Sender: SPECGX
  Company Number: US-SPECGX-T202501401

PATIENT
  Age: 64 Year
  Sex: Male

DRUGS (1)
  1. POSACONAZOLE [Suspect]
     Active Substance: POSACONAZOLE
     Indication: Aspergillus infection
     Route: 065

REACTIONS (5)
  - Bronchopulmonary aspergillosis [Fatal]
  - Prostatic abscess [Fatal]
  - Aspergillus infection [Fatal]
  - Transurethral prostatectomy [Unknown]
  - Product use in unapproved indication [Unknown]
